FAERS Safety Report 20397688 (Version 2)
Quarter: 2022Q1

REPORT INFORMATION
  Report Type: Spontaneous
  Country: US (occurrence: US)
  Receive Date: 20220131
  Receipt Date: 20220201
  Transmission Date: 20220424
  Serious: No
  Sender: FDA-Public Use
  Company Number: US-ABBVIE-21K-163-3798996-00

PATIENT
  Age: 30 Year
  Sex: Male
  Weight: 68.100 kg

DRUGS (2)
  1. HUMIRA [Suspect]
     Active Substance: ADALIMUMAB
     Indication: Crohn^s disease
     Route: 058
     Dates: start: 201305
  2. COVID 19 VACCINE [Concomitant]
     Indication: COVID-19 immunisation
     Dosage: MANUFACTURER: MODERNA
     Route: 030
     Dates: start: 20210214, end: 20210214

REACTIONS (1)
  - Poor quality product administered [Recovered/Resolved]

NARRATIVE: CASE EVENT DATE: 20210226
